FAERS Safety Report 7033706-9 (Version None)
Quarter: 2010Q4

REPORT INFORMATION
  Report Type: 
  Country: None (occurrence: None)
  Receive Date: 20101004
  Receipt Date: 20100920
  Transmission Date: 20110411
  Serious: Yes (Hospitalization, Other)
  Sender: FDA-Public Use
  Company Number: AUR-APL-2010-02346

PATIENT
  Sex: Female
  Weight: 65.7716 kg

DRUGS (11)
  1. CITALOPRAM 20MG TABLET [Suspect]
     Indication: ANXIETY
     Dosage: 10MG-DAILY-ORAL
     Route: 048
  2. METOPROLOL TARTRATE [Suspect]
     Indication: HYPERTENSION
     Dosage: 25MG-BID-ORAL
     Route: 048
  3. CHANTIX [Suspect]
     Indication: EX-TOBACCO USER
     Dosage: 0.5 MG - DAILY - ORAL
     Route: 048
  4. NEXIUM [Suspect]
     Indication: GASTROOESOPHAGEAL REFLUX DISEASE
     Dosage: 40MG - DAILY - ORAL
     Route: 048
     Dates: end: 20100101
  5. OMEPRAZOLE [Suspect]
     Indication: GASTROOESOPHAGEAL REFLUX DISEASE
     Dosage: 40MG - DAILY - ORAL
     Route: 048
     Dates: end: 20100901
  6. LIPITOR [Concomitant]
  7. ASPIRIN [Concomitant]
  8. GLUCOSAMINE [Concomitant]
  9. ASCORBIC ACID [Concomitant]
  10. CALCIUM [Concomitant]
  11. MULTI-VITAMIN [Concomitant]

REACTIONS (4)
  - ABNORMAL DREAMS [None]
  - DIARRHOEA [None]
  - MUSCLE STRAIN [None]
  - STENT PLACEMENT [None]
